FAERS Safety Report 19184124 (Version 1)
Quarter: 2021Q2

REPORT INFORMATION
  Report Type: Spontaneous
  Country: US (occurrence: US)
  Receive Date: 20210426
  Receipt Date: 20210426
  Transmission Date: 20210717
  Serious: Yes (Other)
  Sender: FDA-Public Use
  Company Number: None

PATIENT
  Age: 16 Year
  Sex: Female
  Weight: 40.82 kg

DRUGS (1)
  1. FULPHILA [Suspect]
     Active Substance: PEGFILGRASTIM-JMDB
     Indication: CHEMOTHERAPY
     Route: 058
     Dates: start: 20210422, end: 20210422

REACTIONS (3)
  - Syncope [None]
  - Chills [None]
  - Nausea [None]

NARRATIVE: CASE EVENT DATE: 20210424
